FAERS Safety Report 9920773 (Version 1)
Quarter: 2014Q1

REPORT INFORMATION
  Report Type: Spontaneous
  Country: FR (occurrence: FR)
  Receive Date: 20140224
  Receipt Date: 20140224
  Transmission Date: 20141002
  Serious: Yes (Other)
  Sender: FDA-Public Use
  Company Number: FR-MYLANLABS-2014S1003003

PATIENT
  Age: 14 Year
  Sex: Male

DRUGS (1)
  1. RISPERIDONE [Suspect]
     Indication: ABNORMAL BEHAVIOUR
     Dates: start: 201401

REACTIONS (2)
  - Gynaecomastia [Unknown]
  - Breast discharge [Unknown]
